FAERS Safety Report 8176101 (Version 3)
Quarter: 2014Q2

REPORT INFORMATION
  Report Type: Report from Study
  Country: US (occurrence: US)
  Receive Date: 20111011
  Receipt Date: 20140618
  Transmission Date: 20141212
  Serious: Yes (Hospitalization)
  Sender: FDA-Public Use
  Company Number: US-ACTELION-A-US2011-54889

PATIENT
  Age: 33 Year
  Sex: Male

DRUGS (3)
  1. TRACLEER [Suspect]
     Indication: PULMONARY ARTERIAL HYPERTENSION
     Dosage: UNK
     Route: 048
     Dates: start: 20100809
  2. REVATIO [Concomitant]
  3. COUMADIN [Concomitant]

REACTIONS (2)
  - Nephrolithiasis [Unknown]
  - Renal stone removal [Unknown]
